FAERS Safety Report 5726635-1 (Version None)
Quarter: 2008Q2

REPORT INFORMATION
  Report Type: 
  Country: None (occurrence: None)
  Receive Date: 20080502
  Receipt Date: 20080425
  Transmission Date: 20081010
  Serious: No
  Sender: FDA-Public Use
  Company Number: 08H-028-0314201-00

PATIENT
  Sex: Female

DRUGS (1)
  1. PANHEPRIN [Suspect]
     Indication: DRUG USE FOR UNKNOWN INDICATION
     Dosage: 5ML, MONTHLY AND AS NEEDED, INTRAVENOUS
     Route: 042

REACTIONS (3)
  - COUGH [None]
  - EYE PRURITUS [None]
  - URTICARIA [None]
